FAERS Safety Report 8902072 (Version 3)
Quarter: 2013Q1

REPORT INFORMATION
  Report Type: Spontaneous
  Country: US (occurrence: US)
  Receive Date: 20121112
  Receipt Date: 20130103
  Transmission Date: 20140127
  Serious: Yes (Other)
  Sender: FDA-Public Use
  Company Number: US-JNJFOC-20121102353

PATIENT
  Age: 36 Year
  Sex: Female
  Weight: 61.69 kg

DRUGS (7)
  1. REMICADE [Suspect]
     Indication: COLITIS ULCERATIVE
     Route: 042
     Dates: start: 20120920, end: 20120920
  2. REMICADE [Suspect]
     Indication: COLITIS ULCERATIVE
     Route: 042
     Dates: start: 201205, end: 20120809
  3. CLARITIN [Suspect]
     Indication: PREMEDICATION
     Route: 048
     Dates: start: 20120920, end: 20120920
  4. ACETAMINOPHEN [Concomitant]
     Route: 048
     Dates: start: 20120920
  5. TYLENOL [Concomitant]
     Indication: PREMEDICATION
     Route: 065
     Dates: end: 20120920
  6. ASACOL HD [Concomitant]
     Indication: COLITIS ULCERATIVE
     Route: 065
  7. CANASA [Concomitant]
     Indication: COLITIS ULCERATIVE
     Dosage: 4000 (UNITS UNSPECIFIED)
     Route: 065

REACTIONS (5)
  - Premature delivery [Recovered/Resolved]
  - Exposure during pregnancy [Recovered/Resolved]
  - Drug specific antibody present [Not Recovered/Not Resolved]
  - Therapeutic response decreased [Unknown]
  - Infusion related reaction [Recovered/Resolved]
